FAERS Safety Report 4389728-X (Version None)
Quarter: 2004Q2

REPORT INFORMATION
  Report Type: 
  Country: None (occurrence: None)
  Receive Date: 20040629
  Receipt Date: 20030722
  Transmission Date: 20050107
  Serious: Yes (Other)
  Sender: FDA-Public Use
  Company Number: US-JNJFOC-20030705840

PATIENT
  Age: 53 Year
  Sex: Male

DRUGS (13)
  1. DURAGESIC [Suspect]
     Indication: CANCER PAIN
     Dosage: 100 UG/HR, 1 IN 48 HOUR, TRANSDERMAL
     Route: 062
     Dates: start: 20030401, end: 20030721
  2. ACIPHEX (TABLETS) RABEPRAZOLE [Concomitant]
  3. OXYCONTIN [Concomitant]
  4. MORPHINE [Concomitant]
  5. LASIX [Concomitant]
  6. PHENYTOIN [Concomitant]
  7. LISINOPRIL [Concomitant]
  8. INSULIN [Concomitant]
  9. CELEXA (CITALOPRAM HYDROBROMIDE) TABLETS [Concomitant]
  10. ALBUTEROL (SALBUTAMOL) INHALATION [Concomitant]
  11. TEMAZEPAM [Concomitant]
  12. PYRIDOSTIGMINE TABLETS [Concomitant]
  13. TRAZODONE HCL [Concomitant]

REACTIONS (2)
  - RESPIRATORY DEPRESSION [None]
  - THERAPEUTIC RESPONSE DECREASED [None]
